FAERS Safety Report 10034119 (Version 1)
Quarter: 2014Q1

REPORT INFORMATION
  Report Type: Spontaneous
  Country: US (occurrence: None)
  Receive Date: 20140324
  Receipt Date: 20140324
  Transmission Date: 20141002
  Serious: Yes (Other)
  Sender: FDA-Public Use
  Company Number: None

PATIENT
  Age: 65 Year
  Sex: Male

DRUGS (1)
  1. BOTOX 200 UNITS ALLERGAN [Suspect]
     Dosage: 200 UNITS IM ONCE EVERY 3 MONTHS
     Route: 030
     Dates: start: 20131228, end: 20130320

REACTIONS (1)
  - Muscular weakness [None]
